FAERS Safety Report 14813864 (Version 1)
Quarter: 2018Q2

REPORT INFORMATION
  Report Type: Spontaneous
  Country: FR (occurrence: FR)
  Receive Date: 20180426
  Receipt Date: 20180426
  Transmission Date: 20180711
  Serious: Yes (Hospitalization)
  Sender: FDA-Public Use
  Company Number: FR-MERCK KGAA-2046571

PATIENT
  Age: 71 Year
  Sex: Female

DRUGS (1)
  1. NOVOTHYROX [Suspect]
     Active Substance: LEVOTHYROXINE SODIUM
     Indication: POST PROCEDURAL HYPOTHYROIDISM
     Dates: start: 201703, end: 201708

REACTIONS (14)
  - Fatigue [Recovering/Resolving]
  - Negative thoughts [Recovering/Resolving]
  - Arrhythmia [Recovering/Resolving]
  - Feeling cold [Recovering/Resolving]
  - Myalgia [Recovering/Resolving]
  - Social avoidant behaviour [Recovering/Resolving]
  - Anxiety [Recovering/Resolving]
  - Decreased interest [Recovering/Resolving]
  - Asthenia [Recovering/Resolving]
  - Vertigo positional [Recovering/Resolving]
  - Muscle spasms [Recovering/Resolving]
  - Crying [Recovering/Resolving]
  - Apathy [Recovering/Resolving]
  - Insomnia [Recovering/Resolving]

NARRATIVE: CASE EVENT DATE: 2017
